FAERS Safety Report 17541524 (Version 3)
Quarter: 2020Q3

REPORT INFORMATION
  Report Type: Report from Study
  Country: US (occurrence: US)
  Receive Date: 20200313
  Receipt Date: 20200716
  Transmission Date: 20201102
  Serious: Yes (Other)
  Sender: FDA-Public Use
  Company Number: US-ASTRAZENECA-2019SF31019

PATIENT
  Age: 544 Month
  Sex: Female
  Weight: 75.3 kg

DRUGS (19)
  1. EXCEDRIN MIGRAINE [Concomitant]
     Active Substance: ACETAMINOPHEN\ASPIRIN\CAFFEINE
  2. MAGNESIUM [Concomitant]
     Active Substance: MAGNESIUM
     Indication: MUSCLE SPASMS
     Dosage: 250.0MG AS REQUIRED
     Dates: start: 201812, end: 20200304
  3. SINGULAIR [Concomitant]
     Active Substance: MONTELUKAST SODIUM
     Indication: HYPERSENSITIVITY
  4. PANTOPRAZOLE [Concomitant]
     Active Substance: PANTOPRAZOLE
     Indication: ABDOMINAL PAIN UPPER
  5. PANTOPRAZOLE SODIUM. [Concomitant]
     Active Substance: PANTOPRAZOLE SODIUM
  6. OMEPRAZOLE. [Suspect]
     Active Substance: OMEPRAZOLE
     Route: 048
  7. SUCRALFATE. [Concomitant]
     Active Substance: SUCRALFATE
     Indication: UNEVALUABLE EVENT
  8. PREDNISONE. [Concomitant]
     Active Substance: PREDNISONE
     Dosage: 40MG DAILY FOR 5 DAYS
  9. PREDNISONE. [Concomitant]
     Active Substance: PREDNISONE
     Dosage: 5 MG FOR 5 DAYS
  10. OXYCODONE?ACETAMINOPHE [Concomitant]
  11. DEXAMETHASONE. [Concomitant]
     Active Substance: DEXAMETHASONE
  12. BENADRYL [Concomitant]
     Active Substance: DIPHENHYDRAMINE HYDROCHLORIDE
     Indication: MUSCLE SPASMS
     Dates: start: 20200304
  13. TAGRISSO [Suspect]
     Active Substance: OSIMERTINIB
     Indication: LUNG CARCINOMA CELL TYPE UNSPECIFIED STAGE IV
     Route: 048
     Dates: start: 20180831, end: 20200530
  14. MAGNESIUM [Concomitant]
     Active Substance: MAGNESIUM
     Indication: MUSCLE SPASMS
     Dates: start: 201812, end: 20200304
  15. PREDNISONE. [Concomitant]
     Active Substance: PREDNISONE
     Dosage: 10MG FOR 5 DAYS
  16. MEMANTINE HCL [Concomitant]
     Active Substance: MEMANTINE
  17. TAGRISSO [Suspect]
     Active Substance: OSIMERTINIB
     Indication: NON-SMALL CELL LUNG CANCER
     Route: 048
     Dates: start: 20180831, end: 20200530
  18. URIBEL [Concomitant]
     Active Substance: HYOSCYAMINE SULFATE\METHENAMINE\METHYLENE BLUE\PHENYL SALICYLATE\SODIUM PHOSPHATE, MONOBASIC, MONOHYDRATE
  19. MONTELUKAST SODIUM. [Concomitant]
     Active Substance: MONTELUKAST SODIUM

REACTIONS (19)
  - Pulmonary fibrosis [Unknown]
  - Chest pain [Not Recovered/Not Resolved]
  - Swollen tongue [Unknown]
  - Dyspnoea [Unknown]
  - Non-small cell lung cancer [Unknown]
  - Malignant neoplasm progression [Not Recovered/Not Resolved]
  - Muscle spasms [Not Recovered/Not Resolved]
  - Dehydration [Unknown]
  - Abdominal pain upper [Recovering/Resolving]
  - Fatigue [Unknown]
  - Stomatitis [Recovering/Resolving]
  - Renal neoplasm [Recovered/Resolved]
  - Radiation pneumonitis [Unknown]
  - Skin haemorrhage [Recovering/Resolving]
  - Aphthous ulcer [Recovered/Resolved]
  - Pain [Unknown]
  - Rhinorrhoea [Not Recovered/Not Resolved]
  - Ejection fraction decreased [Not Recovered/Not Resolved]
  - Back pain [Not Recovered/Not Resolved]

NARRATIVE: CASE EVENT DATE: 201809
